FAERS Safety Report 17281574 (Version 12)
Quarter: 2024Q4

REPORT INFORMATION
  Report Type: Report from Study
  Country: US (occurrence: US)
  Receive Date: 20200117
  Receipt Date: 20241226
  Transmission Date: 20250115
  Serious: Yes (Other)
  Sender: TAKEDA
  Company Number: US-SHIRE-US202001814

PATIENT
  Age: 29 Year
  Sex: Male

DRUGS (3)
  1. RECOMBINATE [Suspect]
     Active Substance: ANTIHEMOPHILIC FACTOR, HUMAN RECOMBINANT
     Indication: Product used for unknown indication
     Dosage: 4000 INTERNATIONAL UNIT
  2. RECOMBINATE [Suspect]
     Active Substance: ANTIHEMOPHILIC FACTOR, HUMAN RECOMBINANT
     Dosage: 4000 INTERNATIONAL UNIT
  3. RECOMBINATE [Suspect]
     Active Substance: ANTIHEMOPHILIC FACTOR, HUMAN RECOMBINANT
     Dosage: 4000 INTERNATIONAL UNIT

REACTIONS (8)
  - Gastrointestinal haemorrhage [Unknown]
  - Crohn^s disease [Unknown]
  - Haemoptysis [Unknown]
  - Epistaxis [Recovered/Resolved]
  - Sleep apnoea syndrome [Unknown]
  - Road traffic accident [Unknown]
  - Fall [Unknown]
  - Joint lock [Unknown]

NARRATIVE: CASE EVENT DATE: 20200107
